FAERS Safety Report 9779048 (Version 1)
Quarter: 2013Q4

REPORT INFORMATION
  Report Type: Spontaneous
  Country: US (occurrence: US)
  Receive Date: 20131223
  Receipt Date: 20131223
  Transmission Date: 20140711
  Serious: No
  Sender: FDA-Public Use
  Company Number: US-ENDO PHARMACEUTICALS INC.-OPCR20130357

PATIENT
  Age: 62 Year
  Sex: 0
  Weight: 143.01 kg

DRUGS (1)
  1. OPANA ER 40MG [Suspect]
     Indication: BACK PAIN
     Route: 048
     Dates: start: 201309

REACTIONS (1)
  - Drug ineffective [Not Recovered/Not Resolved]
